FAERS Safety Report 10185182 (Version 1)
Quarter: 2014Q2

REPORT INFORMATION
  Report Type: Spontaneous
  Country: US (occurrence: None)
  Receive Date: 20140520
  Receipt Date: 20140520
  Transmission Date: 20141212
  Serious: No
  Sender: FDA-Public Use
  Company Number: None

PATIENT
  Age: 75 Year
  Sex: Male

DRUGS (12)
  1. TARCEVA 100 MG GENENTECH [Suspect]
     Dosage: 1 TABLET QD ORAL
     Route: 048
  2. XARELTO [Concomitant]
  3. AMLODIPINE [Concomitant]
  4. HCTZ [Concomitant]
  5. LISINOPRIL [Concomitant]
  6. MIRTAZAPINE [Concomitant]
  7. MONTELUKAST [Concomitant]
  8. BYSTOLIC [Concomitant]
  9. KLOR-CON [Concomitant]
  10. LYRICA [Concomitant]
  11. FLOMAX [Concomitant]
  12. TRAMADOL [Concomitant]

REACTIONS (1)
  - Rash [None]
